FAERS Safety Report 9388221 (Version 2)
Quarter: 2022Q1

REPORT INFORMATION
  Report Type: Spontaneous
  Country: DE (occurrence: DE)
  Receive Date: 20130708
  Receipt Date: 20220325
  Transmission Date: 20220423
  Serious: Yes (Hospitalization, Other)
  Sender: FDA-Public Use
  Company Number: DE-TEVA-416243GER

PATIENT
  Age: 48 Year
  Sex: Male

DRUGS (13)
  1. DIAZEPAM [Suspect]
     Active Substance: DIAZEPAM
     Dosage: 20 GTT DAILY;
     Route: 048
     Dates: start: 201110
  2. DIAZEPAM [Suspect]
     Active Substance: DIAZEPAM
     Route: 048
     Dates: end: 201301
  3. ZOPICLONE [Suspect]
     Active Substance: ZOPICLONE
     Indication: Sleep disorder
     Dosage: 1 DOSAGE FORMS DAILY; 0-0-1
     Route: 048
     Dates: start: 2003
  4. ZOPICLONE [Suspect]
     Active Substance: ZOPICLONE
     Dosage: 1 DOSAGE FORMS DAILY; 0-0-2
     Route: 048
  5. ZOPICLONE [Suspect]
     Active Substance: ZOPICLONE
     Dosage: 1 DOSAGE FORMS DAILY; 0-0-1.5
     Route: 048
  6. ZOPICLONE [Suspect]
     Active Substance: ZOPICLONE
     Dosage: 7.5 MILLIGRAM DAILY;
     Route: 065
     Dates: start: 2004
  7. ZOPICLONE [Suspect]
     Active Substance: ZOPICLONE
     Dosage: 15 MILLIGRAM DAILY;
     Route: 065
     Dates: start: 2004, end: 201110
  8. VERAPAMIL [Suspect]
     Active Substance: VERAPAMIL HYDROCHLORIDE
     Route: 065
  9. MIRTAZAPINE [Concomitant]
     Active Substance: MIRTAZAPINE
     Indication: Depression
  10. BISOPROLOL [Concomitant]
     Active Substance: BISOPROLOL
  11. MESALAMINE [Concomitant]
     Active Substance: MESALAMINE
  12. PANTOPRAZOLE SODIUM [Concomitant]
     Active Substance: PANTOPRAZOLE SODIUM
     Dates: start: 201301
  13. DRUGS FOR OBSTRUCTIVE AIRWAY DISEASES [Concomitant]
     Indication: Bronchial disorder

REACTIONS (20)
  - Crohn^s disease [Recovering/Resolving]
  - Withdrawal syndrome [Recovering/Resolving]
  - Drug dependence [Unknown]
  - Depressive symptom [Recovering/Resolving]
  - Sleep disorder [Recovering/Resolving]
  - Photosensitivity reaction [Recovering/Resolving]
  - Hyperacusis [Recovering/Resolving]
  - Personality change [Recovering/Resolving]
  - Aggression [Recovering/Resolving]
  - Irritability [Recovering/Resolving]
  - Muscle twitching [Recovering/Resolving]
  - Tachycardia [Recovering/Resolving]
  - Tinnitus [Recovering/Resolving]
  - Deafness [Recovering/Resolving]
  - Off label use [Unknown]
  - Nasopharyngitis [Recovering/Resolving]
  - Fatigue [Recovering/Resolving]
  - Feeling abnormal [Recovering/Resolving]
  - Insomnia [Recovering/Resolving]
  - Thyroid size decreased [Unknown]

NARRATIVE: CASE EVENT DATE: 20130101
